FAERS Safety Report 23561190 (Version 2)
Quarter: 2024Q2

REPORT INFORMATION
  Report Type: Spontaneous
  Country: US (occurrence: US)
  Receive Date: 20240224
  Receipt Date: 20240410
  Transmission Date: 20240716
  Serious: No
  Sender: FDA-Public Use
  Company Number: US-002147023-NVSC2024US038944

PATIENT
  Age: 69 Year
  Sex: Female
  Weight: 72.1 kg

DRUGS (3)
  1. INCLISIRAN [Suspect]
     Active Substance: INCLISIRAN
     Indication: Blood cholesterol
     Dosage: 284 MG, ONE SINGLE DOSE
     Route: 058
     Dates: start: 20230424
  2. INCLISIRAN [Suspect]
     Active Substance: INCLISIRAN
     Indication: Arteriosclerosis
  3. INCLISIRAN [Suspect]
     Active Substance: INCLISIRAN
     Indication: Manual lymphatic drainage

REACTIONS (1)
  - Injection site rash [Recovered/Resolved]

NARRATIVE: CASE EVENT DATE: 20240216
